FAERS Safety Report 5087873-7 (Version None)
Quarter: 2006Q3

REPORT INFORMATION
  Report Type: 
  Country: None (occurrence: None)
  Receive Date: 20060824
  Receipt Date: 20060118
  Transmission Date: 20061208
  Serious: Yes (Other)
  Sender: FDA-Public Use
  Company Number: US-ROCHE-432846

PATIENT
  Age: 17 Year
  Sex: Male
  Weight: 66.2 kg

DRUGS (3)
  1. ACCUTANE [Suspect]
     Route: 048
     Dates: start: 20020102, end: 20020112
  2. ACCUTANE [Suspect]
     Dosage: DOSAGE REGIMEN REPORTED AS 40-80-40.
     Route: 048
     Dates: start: 20020112, end: 20020202
  3. ACCUTANE [Suspect]
     Route: 048
     Dates: start: 20020418, end: 20020904

REACTIONS (19)
  - ANAL HAEMORRHAGE [None]
  - ANXIETY [None]
  - ARTHRALGIA [None]
  - ASTHENIA [None]
  - CLOSTRIDIUM DIFFICILE TOXIN TEST POSITIVE [None]
  - COLITIS ULCERATIVE [None]
  - CROHN'S DISEASE [None]
  - CYST [None]
  - DEPRESSION [None]
  - EMOTIONAL DISTRESS [None]
  - FATIGUE [None]
  - FRUSTRATION [None]
  - GASTROINTESTINAL HAEMORRHAGE [None]
  - ILEITIS [None]
  - INFLAMMATORY BOWEL DISEASE [None]
  - INSOMNIA [None]
  - POOR QUALITY SLEEP [None]
  - SLEEP DISORDER [None]
  - WEIGHT FLUCTUATION [None]
